FAERS Safety Report 9146369 (Version 1)
Quarter: 2013Q1

REPORT INFORMATION
  Report Type: Report from Study
  Country: US (occurrence: US)
  Receive Date: 20130307
  Receipt Date: 20130307
  Transmission Date: 20140127
  Serious: Yes (Hospitalization)
  Sender: FDA-Public Use
  Company Number: US-ACTELION-A-NJ2013-80205

PATIENT
  Age: 57 Year
  Sex: Female

DRUGS (3)
  1. VELETRI [Suspect]
     Indication: PULMONARY ARTERIAL HYPERTENSION
     Dosage: 73 NG/KG, PER MIN
     Route: 041
     Dates: start: 20110808
  2. SILDENAFIL [Concomitant]
  3. COUMADIN [Concomitant]

REACTIONS (1)
  - Foot fracture [Unknown]
